FAERS Safety Report 6536435-0 (Version None)
Quarter: 2010Q1

REPORT INFORMATION
  Report Type: 
  Country: None (occurrence: None)
  Receive Date: 20100113
  Receipt Date: 20100105
  Transmission Date: 20100710
  Serious: Yes (Death)
  Sender: FDA-Public Use
  Company Number: GXKR2010US00493

PATIENT
  Age: 13 Year
  Sex: Male

DRUGS (10)
  1. PREDNISONE TAB [Suspect]
     Indication: GRAFT VERSUS HOST DISEASE
     Dosage: 2 MG/KG, UNK
     Route: 065
  2. PREDNISONE TAB [Suspect]
     Dosage: 0.4 MG/DAY
     Route: 065
  3. MYCOPHENOLATE MOFETIL (NGX) [Suspect]
     Indication: GRAFT VERSUS HOST DISEASE
     Route: 065
  4. BECLOMETHASONE (NGX) [Suspect]
     Route: 065
  5. BUDESONIDE (NGX) [Suspect]
     Route: 065
  6. TACROLIMUS [Suspect]
     Indication: GRAFT VERSUS HOST DISEASE
     Dosage: UNK
     Route: 065
  7. STEROIDS NOS [Suspect]
     Indication: GRAFT VERSUS HOST DISEASE
     Route: 065
  8. RITUXIMAB [Suspect]
     Indication: EVANS SYNDROME
     Route: 065
  9. AMBISOME [Concomitant]
     Indication: FUNGAL INFECTION
  10. CASPOFUNGIN ACETATE [Concomitant]
     Indication: FUNGAL INFECTION

REACTIONS (1)
  - POLYOMAVIRUS-ASSOCIATED NEPHROPATHY [None]
